FAERS Safety Report 10993596 (Version 1)
Quarter: 2015Q1

REPORT INFORMATION
  Report Type: Spontaneous
  Country: US (occurrence: None)
  Receive Date: 20150331
  Receipt Date: 20150331
  Transmission Date: 20150721
  Serious: Yes (Other)
  Sender: FDA-Public Use
  Company Number: PHEH2014US010302

PATIENT
  Age: 46 Year

DRUGS (4)
  1. TASIGNA [Suspect]
     Active Substance: NILOTINIB
     Dates: start: 201110
  2. PLAVIX (CLOPIDOGREL BISULFATE) [Concomitant]
  3. ASPIRIN. [Concomitant]
     Active Substance: ASPIRIN
  4. XARELTO [Concomitant]
     Active Substance: RIVAROXABAN

REACTIONS (2)
  - Lymphocytosis [None]
  - Thrombosis [None]

NARRATIVE: CASE EVENT DATE: 201404
